FAERS Safety Report 7661791-X (Version None)
Quarter: 2011Q3

REPORT INFORMATION
  Report Type: 
  Country: None (occurrence: None)
  Receive Date: 20110805
  Receipt Date: 20101028
  Transmission Date: 20111222
  Serious: No
  Sender: FDA-Public Use
  Company Number: US-ABBOTT-10P-163-0681963-00

PATIENT
  Sex: Male
  Weight: 70.37 kg

DRUGS (3)
  1. NIASPAN [Suspect]
     Indication: HYPERLIPIDAEMIA
     Dosage: 500MG IN THE MORNING
     Dates: start: 20101025
  2. FLONASE [Concomitant]
     Indication: PRODUCT USED FOR UNKNOWN INDICATION
  3. LOSARTAN POTASSIUM [Concomitant]
     Indication: PRODUCT USED FOR UNKNOWN INDICATION
     Dosage: HAD NOT TAKEN FOR 3 DAYS

REACTIONS (4)
  - FLUSHING [None]
  - ERYTHEMA [None]
  - CHEST PAIN [None]
  - PARAESTHESIA [None]
